FAERS Safety Report 7554584-5 (Version None)
Quarter: 2011Q2

REPORT INFORMATION
  Report Type: 
  Country: None (occurrence: None)
  Receive Date: 20110614
  Receipt Date: 20110614
  Transmission Date: 20111010
  Serious: Yes (Life-Threatening, Disabling)
  Sender: FDA-Public Use
  Company Number: None

PATIENT
  Age: 28 Year
  Sex: Female
  Weight: 72.5755 kg

DRUGS (2)
  1. LEVOFLOXACIN [Suspect]
     Indication: STAPHYLOCOCCAL INFECTION
     Dates: start: 20110314, end: 20110317
  2. ZYVOX [Suspect]

REACTIONS (6)
  - HYPOAESTHESIA [None]
  - HEAD DISCOMFORT [None]
  - BACK PAIN [None]
  - SENSORY DISTURBANCE [None]
  - SKIN SWELLING [None]
  - MULTIPLE SCLEROSIS [None]
